FAERS Safety Report 5404384-7 (Version None)
Quarter: 2007Q3

REPORT INFORMATION
  Report Type: 
  Country: None (occurrence: None)
  Receive Date: 20070802
  Receipt Date: 20070627
  Transmission Date: 20080115
  Serious: No
  Sender: FDA-Public Use
  Company Number: GB-PFIZER INC-2007050821

PATIENT
  Age: 83 Year
  Sex: Male

DRUGS (2)
  1. SALAZOPYRIN [Suspect]
     Indication: COLITIS ULCERATIVE
     Route: 048
  2. SALAZOPYRIN [Suspect]
     Indication: CROHN'S DISEASE

REACTIONS (1)
  - DYSPHAGIA [None]
